FAERS Safety Report 8133802-9 (Version None)
Quarter: 2012Q1

REPORT INFORMATION
  Report Type: 
  Country: None (occurrence: None)
  Receive Date: 20120213
  Receipt Date: 20120213
  Transmission Date: 20120608
  Serious: Yes (Other)
  Sender: FDA-Public Use
  Company Number: None

PATIENT
  Age: 70 Year
  Sex: Male
  Weight: 74.389 kg

DRUGS (1)
  1. ZYLOPRIM [Suspect]
     Indication: GOUT
     Dosage: 300 MG.
     Route: 048
     Dates: start: 20111215, end: 20120209

REACTIONS (5)
  - FOREIGN BODY [None]
  - COUGH [None]
  - OESOPHAGEAL ULCER [None]
  - PRODUCT SUBSTITUTION ISSUE [None]
  - PRODUCT SOLUBILITY ABNORMAL [None]
